FAERS Safety Report 6618258-7 (Version None)
Quarter: 2010Q1

REPORT INFORMATION
  Report Type: 
  Country: None (occurrence: None)
  Receive Date: 20100308
  Receipt Date: 20100126
  Transmission Date: 20100710
  Serious: Yes (Other)
  Sender: FDA-Public Use
  Company Number: US-JNJFOC-20100203018

PATIENT
  Age: 61 Year
  Sex: Female
  Weight: 117.94 kg

DRUGS (7)
  1. TYLENOL (CAPLET) [Suspect]
     Indication: VARICOSE VEIN
     Route: 048
  2. TYLENOL (CAPLET) [Suspect]
     Route: 048
  3. DIGOXIN [Concomitant]
     Indication: CARDIAC DISORDER
  4. COUMADIN [Concomitant]
  5. COUMADIN [Concomitant]
  6. BISOPROLOL [Concomitant]
  7. CLARITIN [Concomitant]
     Indication: HYPERSENSITIVITY

REACTIONS (6)
  - DIARRHOEA [None]
  - LETHARGY [None]
  - LOSS OF CONSCIOUSNESS [None]
  - PRODUCT QUALITY ISSUE [None]
  - VOMITING [None]
  - WEIGHT DECREASED [None]
